FAERS Safety Report 4480855-5 (Version None)
Quarter: 2004Q4

REPORT INFORMATION
  Report Type: 
  Country: None (occurrence: None)
  Receive Date: 20041021
  Receipt Date: 20021122
  Transmission Date: 20050328
  Serious: Yes (Hospitalization, Other)
  Sender: FDA-Public Use
  Company Number: PHEH2002US10075

PATIENT
  Age: 54 Year
  Sex: Female
  Weight: 77 kg

DRUGS (3)
  1. ZELNORM [Suspect]
     Indication: IRRITABLE BOWEL SYNDROME
     Dosage: 6 MG, ONCE/SINGLE
     Route: 048
     Dates: start: 20021107, end: 20021107
  2. ACIPHEX [Concomitant]
     Dosage: 20 MG, BID
     Route: 048
     Dates: start: 20011129
  3. ZANTAC [Concomitant]
     Dosage: 300 MG, QHS
     Route: 048
     Dates: start: 20021003

REACTIONS (11)
  - ABDOMINAL DISTENSION [None]
  - COLITIS ISCHAEMIC [None]
  - COLITIS ULCERATIVE [None]
  - DEHYDRATION [None]
  - DIARRHOEA [None]
  - DIARRHOEA HAEMORRHAGIC [None]
  - DIVERTICULUM INTESTINAL [None]
  - GASTROINTESTINAL ARTERIOVENOUS MALFORMATION [None]
  - HYPOTENSION [None]
  - IMPAIRED GASTRIC EMPTYING [None]
  - RECTAL HAEMORRHAGE [None]
